FAERS Safety Report 11966659 (Version 1)
Quarter: 2016Q1

REPORT INFORMATION
  Report Type: Spontaneous
  Country: US (occurrence: US)
  Receive Date: 20160127
  Receipt Date: 20160127
  Transmission Date: 20160526
  Serious: Yes (Hospitalization)
  Sender: FDA-Public Use
  Company Number: US-ALKERMES INC.-ALK-2016-000149

PATIENT

DRUGS (3)
  1. VIVITROL [Suspect]
     Active Substance: NALTREXONE
     Dosage: 380 MG, QMO
     Route: 030
     Dates: start: 2014, end: 20151207
  2. VIVITROL [Suspect]
     Active Substance: NALTREXONE
     Dosage: 380 MG, QMO
     Route: 030
     Dates: start: 20160104
  3. VIVITROL [Suspect]
     Active Substance: NALTREXONE
     Indication: DRUG DEPENDENCE
     Dosage: 380 MG, QMO
     Route: 030
     Dates: start: 20131216, end: 2014

REACTIONS (14)
  - Neurological symptom [Not Recovered/Not Resolved]
  - Myositis [Unknown]
  - Injection site swelling [Unknown]
  - Blood creatine phosphokinase increased [Unknown]
  - Hypoaesthesia [Not Recovered/Not Resolved]
  - Scab [Not Recovered/Not Resolved]
  - Nerve compression [Unknown]
  - Pain [Not Recovered/Not Resolved]
  - Myoglobinuria [Recovered/Resolved]
  - Injection site rash [Unknown]
  - Drug dose omission [Recovered/Resolved]
  - Injection site pain [Not Recovered/Not Resolved]
  - Dental caries [Not Recovered/Not Resolved]
  - Injection site reaction [Unknown]

NARRATIVE: CASE EVENT DATE: 201601
